FAERS Safety Report 7809018-X (Version None)
Quarter: 2011Q4

REPORT INFORMATION
  Report Type: 
  Country: None (occurrence: None)
  Receive Date: 20111012
  Receipt Date: 20111012
  Transmission Date: 20120403
  Serious: Yes (Other)
  Sender: FDA-Public Use
  Company Number: None

PATIENT
  Age: 53 Year
  Sex: Female
  Weight: 106.14 kg

DRUGS (1)
  1. SCOT-TUSSIN [Suspect]
     Indication: BRONCHITIS
     Dosage: 2 T
     Route: 048
     Dates: start: 20091101, end: 20091105

REACTIONS (1)
  - HYPOAESTHESIA [None]
